FAERS Safety Report 10306132 (Version 1)
Quarter: 2014Q3

REPORT INFORMATION
  Report Type: Spontaneous
  Country: US (occurrence: None)
  Receive Date: 20140711
  Receipt Date: 20140711
  Transmission Date: 20150326
  Serious: Yes (Other)
  Sender: FDA-Public Use
  Company Number: SYM-2014-22737

PATIENT
  Age: 34 Year
  Sex: Female

DRUGS (1)
  1. SHOWER TO SHOWER ISLAND FRESH (SHOWER TO SHOWER) (POWDER) (SHOWER TO SHOWER) [Suspect]
     Active Substance: TALC
     Indication: PRODUCT USED FOR UNKNOWN INDICATION
     Dosage: APPLIED PRODUCT ON THE BODY, ARMS, PRIVATE AREAS
     Route: 061
     Dates: start: 1979, end: 20140627

REACTIONS (1)
  - Uterine disorder [None]

NARRATIVE: CASE EVENT DATE: 1993
